FAERS Safety Report 9153487 (Version 1)
Quarter: 2013Q1

REPORT INFORMATION
  Report Type: Spontaneous
  Country: PL (occurrence: None)
  Receive Date: 20130205
  Receipt Date: 20130205
  Transmission Date: 20140127
  Serious: Yes (Hospitalization)
  Sender: FDA-Public Use
  Company Number: AUR-APL-2013-01128

PATIENT
  Age: 55 Year
  Sex: Male

DRUGS (4)
  1. PIPERACILLIN+TAZOBACTAM (PIPERACILLIN, TAZOBACTAM) [Suspect]
     Indication: PNEUMONIA
  2. CEPHAZOLIN (CEFAZOLIN SODIUM) [Suspect]
  3. CEFOPERAZONE/SULBACTAM [Suspect]
  4. CEFTAZIDIME (CEFTAZIDIME) [Suspect]

REACTIONS (5)
  - Clostridium difficile infection [None]
  - Pseudomembranous colitis [None]
  - Megacolon [None]
  - Septic shock [None]
  - Organ failure [None]
